FAERS Safety Report 15957096 (Version 1)
Quarter: 2019Q1

REPORT INFORMATION
  Report Type: Spontaneous
  Country: US (occurrence: US)
  Receive Date: 20190213
  Receipt Date: 20190213
  Transmission Date: 20190417
  Serious: No
  Sender: FDA-Public Use
  Company Number: US-ENDO PHARMACEUTICALS INC-2018-036648

PATIENT
  Age: 61 Year
  Sex: Female
  Weight: 68.48 kg

DRUGS (1)
  1. NASCOBAL [Suspect]
     Active Substance: CYANOCOBALAMIN
     Indication: NEUROPATHY VITAMIN B12 DEFICIENCY
     Dosage: 500 ?G, WEEKLY
     Route: 045

REACTIONS (7)
  - Hypoaesthesia [Recovered/Resolved]
  - Pain [Recovered/Resolved]
  - Inappropriate schedule of product administration [Recovered/Resolved]
  - Paraesthesia [Recovered/Resolved]
  - Product dose omission [Recovered/Resolved]
  - Product container issue [Recovered/Resolved]
  - Temperature intolerance [Recovered/Resolved]

NARRATIVE: CASE EVENT DATE: 201804
